FAERS Safety Report 4983637-0 (Version None)
Quarter: 2006Q2

REPORT INFORMATION
  Report Type: 
  Country: None (occurrence: None)
  Receive Date: 20060425
  Receipt Date: 20060425
  Transmission Date: 20061013
  Serious: Yes (Hospitalization)
  Sender: FDA-Public Use
  Company Number: None

PATIENT
  Sex: Male
  Weight: 95.5 kg

DRUGS (13)
  1. PROVIGIL [Suspect]
     Indication: SEDATION
     Dosage: 100 MG   DAILY AT 8   ORAL;  100 MG  DAILY AT 8 + 12  ORAL
     Route: 048
     Dates: start: 20051228, end: 20060102
  2. PROVIGIL [Suspect]
     Indication: SEDATION
     Dosage: 100 MG   DAILY AT 8   ORAL;  100 MG  DAILY AT 8 + 12  ORAL
     Route: 048
     Dates: start: 20060102, end: 20060215
  3. ACETAMINOPHEN [Concomitant]
  4. DONEPEZIL HCL [Concomitant]
  5. LACTULOSE [Concomitant]
  6. NORVASC [Concomitant]
  7. SERTRALINE [Concomitant]
  8. SPIRONOLACTONE [Concomitant]
  9. VITAMIN B COMPLEX CAP [Concomitant]
  10. ZONEGRAN [Concomitant]
  11. RANITIDINE [Concomitant]
  12. MEMANTINE HCL [Concomitant]
  13. OLANZAPINE [Concomitant]

REACTIONS (1)
  - AMMONIA INCREASED [None]
